FAERS Safety Report 7323045-0 (Version None)
Quarter: 2011Q1

REPORT INFORMATION
  Report Type: 
  Country: None (occurrence: None)
  Receive Date: 20110301
  Receipt Date: 20110222
  Transmission Date: 20110831
  Serious: Yes (Other)
  Sender: FDA-Public Use
  Company Number: CH-PFIZER INC-2011041520

PATIENT
  Sex: Female

DRUGS (12)
  1. CYMBALTA [Concomitant]
     Dosage: 60 MG, 1X/DAY
  2. MEBEVERINE HYDROCHLORIDE [Concomitant]
     Dosage: UNK
     Route: 048
  3. ZOFRAN [Concomitant]
     Dosage: 4 MG, 3X/DAY
     Route: 048
     Dates: start: 20110104
  4. INDIVINA [Concomitant]
     Dosage: 2.5 MG, 1X/DAY
     Route: 048
  5. TRASTUZUMAB [Concomitant]
     Indication: CHEMOTHERAPY
  6. ASPIRIN [Concomitant]
     Dosage: 100 MG, 1X/DAY
     Dates: start: 20110104, end: 20110125
  7. PANTOZOL [Suspect]
     Indication: ABDOMINAL PAIN
     Dosage: 40 MG, 2X/DAY
     Route: 048
     Dates: start: 20110104, end: 20110114
  8. BISOPROLOL FUMARATE [Concomitant]
     Dosage: 0.5 MG, 1X/DAY
     Route: 048
  9. PALLADONE [Concomitant]
     Dosage: 4 MG, 1X/DAY
  10. CARBOPLATIN [Concomitant]
     Indication: CHEMOTHERAPY
  11. NOVALGIN [Concomitant]
     Dosage: 500 MG UNTIL 6 PER DAY
     Route: 048
     Dates: start: 20110104
  12. TAXOL [Concomitant]
     Indication: CHEMOTHERAPY

REACTIONS (3)
  - HYPOTENSION [None]
  - CARDIOVASCULAR DISORDER [None]
  - VERTIGO [None]
